FAERS Safety Report 7128781-7 (Version None)
Quarter: 2010Q4

REPORT INFORMATION
  Report Type: 
  Country: None (occurrence: None)
  Receive Date: 20101112
  Receipt Date: 20101104
  Transmission Date: 20110411
  Serious: Yes (Other)
  Sender: FDA-Public Use
  Company Number: 2010MA004208

PATIENT
  Age: 4 Year
  Sex: Female
  Weight: 21.3191 kg

DRUGS (1)
  1. IBUPROFEN [Suspect]
     Indication: ACCIDENTAL EXPOSURE
     Dosage: 30 ML; X1; PO
     Route: 048
     Dates: start: 20101104, end: 20101104

REACTIONS (2)
  - ACCIDENTAL DRUG INTAKE BY CHILD [None]
  - FATIGUE [None]
